FAERS Safety Report 8964907 (Version 1)
Quarter: 2012Q4

REPORT INFORMATION
  Report Type: 
  Country: US (occurrence: US)
  Receive Date: 20121214
  Receipt Date: 20121214
  Transmission Date: 20130627
  Serious: Yes (Other)
  Sender: FDA-Public Use
  Company Number: US-ROCHE-791245

PATIENT
  Sex: Male
  Weight: 86.26 kg

DRUGS (2)
  1. ACCUTANE [Suspect]
     Indication: ACNE
     Route: 065
     Dates: start: 1985, end: 1986
  2. ACCUTANE [Suspect]
     Route: 065
     Dates: start: 1986, end: 1987

REACTIONS (6)
  - Crohn^s disease [Unknown]
  - Inflammatory bowel disease [Unknown]
  - Stress [Unknown]
  - Depression [Unknown]
  - Intestinal obstruction [Unknown]
  - Anal fissure [Unknown]
